FAERS Safety Report 23616634 (Version 4)
Quarter: 2024Q3

REPORT INFORMATION
  Report Type: Spontaneous
  Country: NZ (occurrence: NZ)
  Receive Date: 20240311
  Receipt Date: 20240718
  Transmission Date: 20241017
  Serious: Yes (Hospitalization, Other)
  Sender: MERCK
  Company Number: NZ-009507513-2403NZL001968

PATIENT
  Age: 52 Year
  Sex: Male
  Weight: 129 kg

DRUGS (1)
  1. PEMBROLIZUMAB [Suspect]
     Active Substance: PEMBROLIZUMAB
     Indication: Malignant melanoma
     Dosage: 200 MILLIGRAM, Q3W
     Route: 042
     Dates: start: 20230927

REACTIONS (6)
  - Retinitis [Recovering/Resolving]
  - Immune-mediated myocarditis [Recovering/Resolving]
  - Hepatitis [Recovering/Resolving]
  - Thyroiditis [Recovering/Resolving]
  - Pneumonitis [Recovering/Resolving]
  - Hypothyroidism [Unknown]

NARRATIVE: CASE EVENT DATE: 20231001
